FAERS Safety Report 9712762 (Version 1)
Quarter: 2013Q4

REPORT INFORMATION
  Report Type: Spontaneous
  Country: US (occurrence: US)
  Receive Date: 20131126
  Receipt Date: 20131126
  Transmission Date: 20140711
  Serious: No
  Sender: FDA-Public Use
  Company Number: US-PFIZER INC-2013310229

PATIENT
  Age: 63 Year
  Sex: 0

DRUGS (6)
  1. ATENOLOL [Suspect]
     Dosage: UNK
  2. EFFEXOR [Suspect]
     Dosage: UNK
  3. XALATAN [Suspect]
     Dosage: UNK
  4. VITAMIN C [Suspect]
     Dosage: UNK
  5. ACETYLSALICYLIC ACID [Suspect]
     Dosage: UNK
  6. JANUVIA [Suspect]
     Dosage: UNK

REACTIONS (1)
  - Drug hypersensitivity [Unknown]
